FAERS Safety Report 7852065-2 (Version None)
Quarter: 2011Q3

REPORT INFORMATION
  Report Type: 
  Country: None (occurrence: None)
  Receive Date: 20110906
  Receipt Date: 20110719
  Transmission Date: 20111222
  Serious: No
  Sender: FDA-Public Use
  Company Number: 201106010

PATIENT
  Age: 69 Year
  Sex: Female

DRUGS (3)
  1. SIMVASTATIN [Concomitant]
  2. MYSOLINE [Concomitant]
  3. XIAFLEX [Suspect]
     Indication: DUPUYTREN'S CONTRACTURE
     Dosage: 1 IN 1 D, INTRALESIONAL
     Route: 026
     Dates: start: 20110602, end: 20110602

REACTIONS (1)
  - HYPERSENSITIVITY [None]
